FAERS Safety Report 4536620-3 (Version None)
Quarter: 2004Q4

REPORT INFORMATION
  Report Type: 
  Country: None (occurrence: None)
  Receive Date: 20041223
  Receipt Date: 20041220
  Transmission Date: 20050328
  Serious: Yes (Hospitalization)
  Sender: FDA-Public Use
  Company Number: 200412850DE

PATIENT
  Age: 63 Year
  Sex: Male

DRUGS (6)
  1. ENOXAPARIN SODIUM [Suspect]
     Indication: CORONARY ANGIOPLASTY
     Route: 042
     Dates: start: 20041104, end: 20041106
  2. ASPIRIN [Concomitant]
     Indication: CORONARY ARTERY DISEASE
     Route: 048
  3. PLAVIX [Concomitant]
     Indication: CORONARY ARTERY DISEASE
     Route: 048
  4. CARVEDILOL [Concomitant]
     Indication: CORONARY ARTERY DISEASE
     Route: 048
  5. ATORVASTATIN [Concomitant]
     Indication: CORONARY ARTERY DISEASE
     Route: 048
  6. CO-DIOVAN [Concomitant]
     Indication: CORONARY ARTERY DISEASE
     Route: 048

REACTIONS (3)
  - ARTERIOVENOUS FISTULA, ACQUIRED [None]
  - GROIN PAIN [None]
  - PAIN [None]
